FAERS Safety Report 15772914 (Version 1)
Quarter: 2018Q4

REPORT INFORMATION
  Report Type: Other
  Country: DE (occurrence: DE)
  Receive Date: 20181228
  Receipt Date: 20181228
  Transmission Date: 20190205
  Serious: Yes (Congenital Anomaly, Other)
  Sender: FDA-Public Use
  Company Number: DE-MACLEODS PHARMACEUTICALS US LTD-MAC2018019384

PATIENT

DRUGS (8)
  1. IBUPROFEN. [Concomitant]
     Active Substance: IBUPROFEN
     Indication: BACK PAIN
     Dosage: UNK, 400 [MG/D ]/ ON DEMAND, MAX ONCE PER WEEK, 0. - 28. GESTATIONAL WEEK, 1 {TRIMESTER}
     Route: 064
  2. OLYNTH [Concomitant]
     Active Substance: XYLOMETAZOLINE HYDROCHLORIDE
     Indication: NASOPHARYNGITIS
     Dosage: UNK, 19.1. - 23.4. GESTATIONAL WEEK , 2 {TRIMESTER}, IF REQUIRED
     Route: 064
  3. PARACETAMOL [Concomitant]
     Active Substance: ACETAMINOPHEN
     Indication: BACK PAIN
     Dosage: UNK, 1500 [MG/D ]/ 1000-1500 MG/D, IN TOTAL 2-3 TIMES, 28. - 36.6. GESTATIONAL WEEK, 3 {TRIMESTER}
     Route: 064
  4. ESCITALOPRAM [Suspect]
     Active Substance: ESCITALOPRAM OXALATE
     Indication: DEPRESSION
     Dosage: UNK, 10 [MG/D ]/ DOSAGE REDUCTION TO 5MG/D BEFORE STOP, 0. - 8. GESTATIONAL WEEK, 1 {TRIMESTER}
     Route: 064
  5. FOLIC ACID. [Concomitant]
     Active Substance: FOLIC ACID
     Indication: PROPHYLAXIS OF NEURAL TUBE DEFECT
     Dosage: UNK, 0.8 [MG/D ]/ FROM WEEK 14, 0.4MG/D, 0. - 36.6. GESTATIONAL WEEK, 1 {TRIMESTER}
     Route: 064
     Dates: start: 20170903, end: 20180519
  6. MAGNESIUM ASPARTATE HYDROCHLORIDE [Concomitant]
     Active Substance: MAGNESIUM ASPARTATE HYDROCHLORIDE
     Indication: ABDOMINAL PAIN
     Dosage: UNK, 20. - 36.6. GESTATIONAL WEEK, 2 {TRIMESTER}
     Route: 064
  7. CETIRIZINE [Concomitant]
     Active Substance: CETIRIZINE HYDROCHLORIDE
     Indication: SEASONAL ALLERGY
     Dosage: UNK, 25.4. - 29.6. GESTATIONAL WEEK, 2 {TRIMESTER}
     Route: 064
  8. CYTOTEC [Concomitant]
     Active Substance: MISOPROSTOL
     Indication: LABOUR INDUCTION
     Dosage: UNK, 36.6. - 36.6. GESTATIONAL WEEK, 3 {TRIMESTER}
     Route: 064

REACTIONS (2)
  - Kidney duplex [Not Recovered/Not Resolved]
  - Foetal exposure during pregnancy [Unknown]
